FAERS Safety Report 20125610 (Version 1)
Quarter: 2021Q4

REPORT INFORMATION
  Report Type: Spontaneous
  Country: US (occurrence: US)
  Receive Date: 20211129
  Receipt Date: 20211129
  Transmission Date: 20220304
  Serious: Yes (Other)
  Sender: FDA-Public Use
  Company Number: US-GLAXOSMITHKLINE-US2021GSK244816

PATIENT
  Sex: Female

DRUGS (5)
  1. RANITIDINE [Suspect]
     Active Substance: RANITIDINE
     Indication: Pregnancy
     Dosage: UNK UNK, QD
     Route: 065
     Dates: start: 199701, end: 200701
  2. ZANTAC [Suspect]
     Active Substance: RANITIDINE HYDROCHLORIDE
     Indication: Pregnancy
     Dosage: UNK UNK, QD
     Route: 065
     Dates: start: 198901, end: 200701
  3. ZANTAC [Suspect]
     Active Substance: RANITIDINE HYDROCHLORIDE
     Indication: Pregnancy
     Dosage: UNK UNK, QD
     Route: 065
     Dates: start: 198901, end: 200701
  4. RANITIDINE [Suspect]
     Active Substance: RANITIDINE
     Indication: Pregnancy
     Dosage: UNK UNK, QD
     Route: 065
     Dates: start: 198901, end: 200701
  5. RANITIDINE [Suspect]
     Active Substance: RANITIDINE
     Indication: Pregnancy
     Dosage: UNK, QD
     Route: 065
     Dates: start: 199701, end: 200701

REACTIONS (2)
  - Bladder cancer [Unknown]
  - Gastric cancer [Unknown]
